FAERS Safety Report 5454151-3 (Version None)
Quarter: 2007Q3

REPORT INFORMATION
  Report Type: 
  Country: None (occurrence: None)
  Receive Date: 20070917
  Receipt Date: 20070911
  Transmission Date: 20080115
  Serious: Yes (Other)
  Sender: FDA-Public Use
  Company Number: PHEH2007US12254

PATIENT

DRUGS (3)
  1. TEKTURNA [Suspect]
     Dosage: 150 MG, UNK
     Route: 048
  2. BENICAR [Concomitant]
     Dosage: MAXIMUM DOSE
  3. LISINOPRIL [Concomitant]
     Dosage: MAXIMUM DOSE

REACTIONS (1)
  - RENAL TUBULAR ACIDOSIS [None]
